FAERS Safety Report 18009920 (Version 1)
Quarter: 2020Q3

REPORT INFORMATION
  Report Type: Spontaneous
  Country: CL (occurrence: CL)
  Receive Date: 20200710
  Receipt Date: 20200710
  Transmission Date: 20201103
  Serious: Yes (Other)
  Sender: FDA-Public Use
  Company Number: CL-MYLANLABS-2020M1063029

PATIENT
  Age: 55 Year
  Sex: Male

DRUGS (1)
  1. LEPONEX [Suspect]
     Active Substance: CLOZAPINE
     Indication: PRODUCT USED FOR UNKNOWN INDICATION
     Dosage: 25 MILLIGRAM, QD
     Route: 048

REACTIONS (14)
  - Mean cell volume increased [Recovering/Resolving]
  - Leukopenia [Recovering/Resolving]
  - Neutrophil count decreased [Unknown]
  - Red cell distribution width increased [Recovered/Resolved]
  - Haematocrit decreased [Unknown]
  - Anisocytosis [Unknown]
  - Macrocytosis [Unknown]
  - Thrombocytosis [Not Recovered/Not Resolved]
  - Eosinophil count decreased [Recovering/Resolving]
  - Polychromasia [Unknown]
  - Mean cell haemoglobin increased [Not Recovered/Not Resolved]
  - Basophil count increased [Unknown]
  - Red blood cell count decreased [Not Recovered/Not Resolved]
  - Lymphopenia [Unknown]

NARRATIVE: CASE EVENT DATE: 20200529
